FAERS Safety Report 25767659 (Version 1)
Quarter: 2025Q3

REPORT INFORMATION
  Report Type: Spontaneous
  Country: CN (occurrence: CN)
  Receive Date: 20250905
  Receipt Date: 20250905
  Transmission Date: 20251021
  Serious: Yes (Other)
  Sender: FERRING
  Company Number: CN-FERRINGPH-2025FE05074

PATIENT

DRUGS (2)
  1. MINIRIN [Suspect]
     Active Substance: DESMOPRESSIN ACETATE
     Indication: Diabetes insipidus
     Dosage: 0.1 MG, 3 TIMES DAILY
     Route: 048
     Dates: start: 20250816, end: 20250820
  2. MINIRIN [Suspect]
     Active Substance: DESMOPRESSIN ACETATE
     Dosage: 1.5 MG, 3 TIMES DAILY
     Route: 048
     Dates: start: 20250827, end: 20250829

REACTIONS (5)
  - Hiccups [Recovering/Resolving]
  - Dizziness [Recovering/Resolving]
  - Nausea [Recovering/Resolving]
  - Vomiting [Recovering/Resolving]
  - Product administration error [Unknown]

NARRATIVE: CASE EVENT DATE: 20250817
